FAERS Safety Report 15209492 (Version 1)
Quarter: 2018Q3

REPORT INFORMATION
  Report Type: Spontaneous
  Country: US (occurrence: US)
  Receive Date: 20180727
  Receipt Date: 20180727
  Transmission Date: 20181010
  Serious: No
  Sender: FDA-Public Use
  Company Number: US-SHIRE-US201828328

PATIENT
  Sex: Male
  Weight: 74.83 kg

DRUGS (2)
  1. CARBATROL [Suspect]
     Active Substance: CARBAMAZEPINE
     Indication: CRANIOCEREBRAL INJURY
     Dosage: 400 MG, 2X/DAY:BID
     Route: 065
  2. ATIVAN [Concomitant]
     Active Substance: LORAZEPAM
     Indication: MENTAL DISORDER
     Route: 065

REACTIONS (1)
  - Anxiety [Unknown]
